FAERS Safety Report 6387337-4 (Version None)
Quarter: 2009Q3

REPORT INFORMATION
  Report Type: 
  Country: None (occurrence: None)
  Receive Date: 20090930
  Receipt Date: 20090914
  Transmission Date: 20100115
  Serious: Yes (Death, Hospitalization)
  Sender: FDA-Public Use
  Company Number: 2009AL002148

PATIENT
  Age: 81 Year
  Sex: Female

DRUGS (26)
  1. DIGOXIN [Suspect]
     Dosage: 0.25MG, DAILY, PO 0.125MG, DAILY, PO
     Route: 048
     Dates: start: 20080320, end: 20080412
  2. DIGOXIN [Suspect]
     Dosage: 0.25MG, DAILY, PO 0.125MG, DAILY, PO
     Route: 048
     Dates: start: 20080316
  3. ZETIA [Concomitant]
  4. COUMADIN [Concomitant]
  5. FLEXERIL [Concomitant]
  6. MACROBID [Concomitant]
  7. DIOVAN [Concomitant]
  8. MACROBID [Concomitant]
  9. DIOVAN [Concomitant]
  10. ISMO [Concomitant]
  11. LOPRESSOR [Concomitant]
  12. NORVASC [Concomitant]
  13. LEVAQUIN [Concomitant]
  14. PRAVACHOL [Concomitant]
  15. LASIX [Concomitant]
  16. KAY CIEL DURA-TABS [Concomitant]
  17. PHENERGAN [Concomitant]
  18. NITROFURANTOIN [Concomitant]
  19. AMLODIPINE [Concomitant]
  20. ISOSORBIDE [Concomitant]
  21. KLOR-CON [Concomitant]
  22. PRAVASTATIN [Concomitant]
  23. CYCLIBENZAPRINE POTASSIUM CHLORIDE [Concomitant]
  24. ASPIRIN [Concomitant]
  25. PREVACID [Concomitant]
  26. REGLAN [Concomitant]

REACTIONS (29)
  - ABDOMINAL PAIN [None]
  - ALTERED STATE OF CONSCIOUSNESS [None]
  - ATRIAL FIBRILLATION [None]
  - CARDIAC MURMUR [None]
  - CEREBROVASCULAR ACCIDENT [None]
  - CONFUSIONAL STATE [None]
  - DECREASED APPETITE [None]
  - DEHYDRATION [None]
  - DIARRHOEA [None]
  - DISORIENTATION [None]
  - DYSURIA [None]
  - ECONOMIC PROBLEM [None]
  - FALL [None]
  - HAEMATOCRIT INCREASED [None]
  - HAEMOGLOBIN INCREASED [None]
  - HYPERSOMNIA [None]
  - INTERNATIONAL NORMALISED RATIO INCREASED [None]
  - INTESTINAL DILATATION [None]
  - LEUKOCYTOSIS [None]
  - MALAISE [None]
  - MULTIPLE INJURIES [None]
  - MYOCARDIAL INFARCTION [None]
  - NAUSEA [None]
  - PARANOIA [None]
  - POLYCYTHAEMIA [None]
  - RENAL FAILURE ACUTE [None]
  - RENAL FAILURE CHRONIC [None]
  - SURGERY [None]
  - VOMITING [None]
